FAERS Safety Report 16820142 (Version 1)
Quarter: 2019Q3

REPORT INFORMATION
  Report Type: Spontaneous
  Country: US (occurrence: US)
  Receive Date: 20190918
  Receipt Date: 20190918
  Transmission Date: 20191005
  Serious: No
  Sender: FDA-Public Use
  Company Number: US-AUROBINDO-AUR-APU-2018-040994

PATIENT
  Age: 54 Year
  Sex: Female
  Weight: 74.83 kg

DRUGS (1)
  1. DEXTROAMPHETAMINE SULFATE TABLETS, USP 10 MG [Suspect]
     Active Substance: DEXTROAMPHETAMINE SULFATE
     Indication: ATTENTION DEFICIT/HYPERACTIVITY DISORDER
     Dosage: 1 TABLET IN MORNING, 1 IN EVENING
     Route: 065
     Dates: start: 20180803

REACTIONS (9)
  - Rash macular [Recovered/Resolved]
  - Product colour issue [Recovered/Resolved]
  - Skin burning sensation [Recovered/Resolved]
  - Product quality issue [Recovered/Resolved]
  - Product solubility abnormal [Recovered/Resolved]
  - Tinnitus [Recovered/Resolved]
  - Eye swelling [Recovered/Resolved]
  - Erythema [Recovered/Resolved]
  - Chills [Recovered/Resolved]

NARRATIVE: CASE EVENT DATE: 20180803
